FAERS Safety Report 7572737-7 (Version None)
Quarter: 2011Q2

REPORT INFORMATION
  Report Type: 
  Country: None (occurrence: None)
  Receive Date: 20110627
  Receipt Date: 20110613
  Transmission Date: 20111010
  Serious: Yes (Other)
  Sender: FDA-Public Use
  Company Number: US-RANBAXY-2011RR-43461

PATIENT
  Sex: Female

DRUGS (8)
  1. CIPROFLOXACIN [Suspect]
     Dosage: 500 MG, UNK
     Route: 048
     Dates: start: 19991130
  2. PREDNISOLONE [Suspect]
     Dosage: 20 MG, QD
  3. CIPROFLOXACIN [Suspect]
     Indication: PRODUCT USED FOR UNKNOWN INDICATION
     Dosage: 400 MG, BID
     Route: 042
     Dates: start: 19990126, end: 19990129
  4. LEVAQUIN [Suspect]
     Indication: URINARY TRACT INFECTION
     Dosage: UNK
     Route: 048
     Dates: start: 20050101, end: 20091231
  5. LEVAQUIN [Suspect]
     Indication: SINUSITIS
     Dosage: 750 MG, UNK
     Dates: start: 20071213
  6. CIPROFLOXACIN [Suspect]
     Dosage: 500 MG, UNK
     Route: 048
     Dates: start: 19991201
  7. LEVAQUIN [Suspect]
     Indication: BRONCHITIS
  8. CIPROFLOXACIN [Suspect]
     Dosage: 500 MG, UNK
     Route: 048
     Dates: start: 19991202

REACTIONS (1)
  - ROTATOR CUFF SYNDROME [None]
